FAERS Safety Report 7168102-7 (Version None)
Quarter: 2010Q4

REPORT INFORMATION
  Report Type: 
  Country: None (occurrence: None)
  Receive Date: 20101216
  Receipt Date: 20101202
  Transmission Date: 20110411
  Serious: No
  Sender: FDA-Public Use
  Company Number: US-PFIZER INC-US-WYE-H18524610

PATIENT
  Age: 54 Year
  Sex: Male
  Weight: 68 kg

DRUGS (1)
  1. ADVIL [Suspect]
     Indication: PAIN
     Dosage: TWO TO THREE TABLETS THREE TIMES A DAY WITHOUT PHYSICIAN'S RECOMMENDATION
     Route: 048
     Dates: start: 20090101

REACTIONS (2)
  - DRUG EFFECT DECREASED [None]
  - OVERDOSE [None]
